FAERS Safety Report 5491000-1 (Version None)
Quarter: 2007Q4

REPORT INFORMATION
  Report Type: 
  Country: None (occurrence: None)
  Receive Date: 20071019
  Receipt Date: 20071010
  Transmission Date: 20080405
  Serious: Yes (Other)
  Sender: FDA-Public Use
  Company Number: SE-PFIZER INC-2007053416

PATIENT
  Sex: Female

DRUGS (6)
  1. CHAMPIX [Suspect]
     Indication: SMOKING CESSATION THERAPY
     Dates: start: 20070101, end: 20070401
  2. LEVOTHYROXINE SODIUM [Concomitant]
  3. URSO FALK [Concomitant]
     Indication: HEPATIC STEATOSIS
  4. COAPROVEL [Concomitant]
     Indication: HYPERTENSION
     Dosage: TEXT:150/12.5
  5. SYMBICORT TURBOHALER [Concomitant]
     Route: 055
  6. ACETYLCYSTEINE [Concomitant]
     Route: 048

REACTIONS (4)
  - NASOPHARYNGITIS [None]
  - ORAL FUNGAL INFECTION [None]
  - PNEUMONIA [None]
  - SJOGREN'S SYNDROME [None]
